FAERS Safety Report 13542675 (Version 1)
Quarter: 2017Q2

REPORT INFORMATION
  Report Type: Spontaneous
  Country: US (occurrence: US)
  Receive Date: 20170512
  Receipt Date: 20170512
  Transmission Date: 20170830
  Serious: Yes (Other)
  Sender: FDA-Public Use
  Company Number: US-ROCHE-723484

PATIENT
  Age: 56 Year
  Sex: Female
  Weight: 68 kg

DRUGS (12)
  1. 5-FU [Concomitant]
     Active Substance: FLUOROURACIL
     Indication: COLORECTAL CANCER
     Route: 065
  2. FOLINIC ACID [Concomitant]
     Active Substance: LEUCOVORIN
     Route: 065
  3. 5-FU [Concomitant]
     Active Substance: FLUOROURACIL
     Route: 065
  4. 5-FU [Concomitant]
     Active Substance: FLUOROURACIL
     Route: 065
  5. FOLINIC ACID [Concomitant]
     Active Substance: LEUCOVORIN
     Route: 065
  6. 5-FU [Concomitant]
     Active Substance: FLUOROURACIL
     Route: 065
  7. FOLINIC ACID [Concomitant]
     Active Substance: LEUCOVORIN
     Route: 065
  8. 5-FU [Concomitant]
     Active Substance: FLUOROURACIL
     Route: 065
  9. FOLINIC ACID [Concomitant]
     Active Substance: LEUCOVORIN
     Route: 065
  10. AVASTIN [Suspect]
     Active Substance: BEVACIZUMAB
     Indication: COLORECTAL CANCER
     Route: 042
     Dates: start: 20100408, end: 20100714
  11. 5-FU [Concomitant]
     Active Substance: FLUOROURACIL
     Route: 065
  12. 5-FU [Concomitant]
     Active Substance: FLUOROURACIL
     Route: 065

REACTIONS (1)
  - Posterior reversible encephalopathy syndrome [Recovered/Resolved]

NARRATIVE: CASE EVENT DATE: 20100714
